FAERS Safety Report 21520235 (Version 2)
Quarter: 2022Q4

REPORT INFORMATION
  Report Type: Spontaneous
  Country: US (occurrence: US)
  Receive Date: 20221028
  Receipt Date: 20221122
  Transmission Date: 20230112
  Serious: No
  Sender: FDA-Public Use
  Company Number: US-PFIZER INC-202201259151

PATIENT
  Age: 48 Year
  Sex: Female
  Weight: 89.796 kg

DRUGS (6)
  1. PAXLOVID [Suspect]
     Active Substance: NIRMATRELVIR\RITONAVIR
     Indication: COVID-19 treatment
     Dosage: TWICE A DAY (20X150MG AND 10X100MG)
     Dates: start: 20221013, end: 20221018
  2. CORICIDIN [CHLORPHENAMINE MALEATE;PARACETAMOL] [Concomitant]
     Dosage: UNK
     Dates: start: 20221011, end: 20221017
  3. CORICIDIN [CHLORPHENAMINE MALEATE;PARACETAMOL] [Concomitant]
     Dosage: UNK
     Dates: start: 20221012, end: 20221102
  4. LYRICA [Concomitant]
     Active Substance: PREGABALIN
     Indication: Pain
     Dosage: 100 MG, 1X/DAY
  5. CELEBREX [Concomitant]
     Active Substance: CELECOXIB
     Indication: Pain
     Dosage: 100 MG, ONCE OR TWICE DAILY
  6. LISINOPRIL [Concomitant]
     Active Substance: LISINOPRIL
     Indication: Hypertension
     Dosage: 20 MG, DAILY

REACTIONS (5)
  - Muscle spasms [Recovered/Resolved]
  - Symptom recurrence [Not Recovered/Not Resolved]
  - Swelling [Unknown]
  - Respiratory tract inflammation [Unknown]
  - Infection [Unknown]

NARRATIVE: CASE EVENT DATE: 20221014
